FAERS Safety Report 7681451-9 (Version None)
Quarter: 2011Q3

REPORT INFORMATION
  Report Type: 
  Country: None (occurrence: None)
  Receive Date: 20110812
  Receipt Date: 20110805
  Transmission Date: 20111222
  Serious: Yes (Hospitalization)
  Sender: FDA-Public Use
  Company Number: US-US-EMD SERONO, INC.-7074872

PATIENT
  Sex: Female

DRUGS (1)
  1. REBIF [Suspect]
     Indication: MULTIPLE SCLEROSIS
     Route: 058
     Dates: start: 20071211

REACTIONS (4)
  - INFLUENZA LIKE ILLNESS [None]
  - FATIGUE [None]
  - TEMPERATURE INTOLERANCE [None]
  - INJECTION SITE HAEMATOMA [None]
